FAERS Safety Report 7019863-9 (Version None)
Quarter: 2010Q3

REPORT INFORMATION
  Report Type: 
  Country: None (occurrence: None)
  Receive Date: 20100927
  Receipt Date: 20100915
  Transmission Date: 20110219
  Serious: Yes (Other)
  Sender: FDA-Public Use
  Company Number: WAES 1009USA03391

PATIENT
  Age: 6 Year
  Sex: Male
  Weight: 24.9478 kg

DRUGS (6)
  1. INJ VORINOSTAT UNK [Suspect]
     Indication: NEUROBLASTOMA
     Dosage: 170 MG/DAILY/PO
     Route: 048
     Dates: start: 20100907
  2. INJ IOBENGUANE I 131 UNK [Suspect]
     Indication: NEUROBLASTOMA
     Dosage: IV
     Route: 042
     Dates: start: 20100909
  3. ONDANSETRON [Concomitant]
  4. POTASSIUM IODIDE [Concomitant]
  5. POTASSIUM PERCHLORATE SOLUTION [Concomitant]
  6. PROCHLORPERAZINE [Concomitant]

REACTIONS (7)
  - CULTURE URINE POSITIVE [None]
  - DRUG TOXICITY [None]
  - NAUSEA [None]
  - NEUROBLASTOMA RECURRENT [None]
  - PYREXIA [None]
  - STAPHYLOCOCCAL INFECTION [None]
  - VOMITING [None]
